FAERS Safety Report 5065148-X (Version None)
Quarter: 2006Q3

REPORT INFORMATION
  Report Type: 
  Country: None (occurrence: None)
  Receive Date: 20060725
  Receipt Date: 20060711
  Transmission Date: 20061208
  Serious: Yes (Other)
  Sender: FDA-Public Use
  Company Number: B0431591A

PATIENT
  Age: 7 Day
  Sex: 0

DRUGS (1)
  1. AMOXIL [Suspect]
     Indication: PREMATURE RUPTURE OF MEMBRANES
     Dosage: TRANSPLACENTARY
     Route: 064

REACTIONS (6)
  - CONJUNCTIVITIS BACTERIAL [None]
  - DRUG EXPOSURE DURING PREGNANCY [None]
  - EYE INFECTION STAPHYLOCOCCAL [None]
  - MATERNAL CONDITION AFFECTING FOETUS [None]
  - OPHTHALMIA NEONATORUM [None]
  - VERTICAL INFECTION TRANSMISSION [None]
